FAERS Safety Report 21514615 (Version 1)
Quarter: 2022Q4

REPORT INFORMATION
  Report Type: Report from Study
  Country: DE (occurrence: DE)
  Receive Date: 20221027
  Receipt Date: 20221027
  Transmission Date: 20230113
  Serious: Yes (Other)
  Sender: FDA-Public Use
  Company Number: DE-MYLANLABS-2022M1118092

PATIENT
  Age: 4 Decade
  Sex: Female

DRUGS (12)
  1. CYCLOSPORINE [Suspect]
     Active Substance: CYCLOSPORINE
     Indication: Multiple sclerosis
     Dosage: UNK
     Route: 065
  2. CYCLOSPORINE [Suspect]
     Active Substance: CYCLOSPORINE
     Indication: Immunosuppressant drug therapy
  3. CYCLOSPORINE [Suspect]
     Active Substance: CYCLOSPORINE
     Indication: Uveitis
  4. INTERFERON BETA [Suspect]
     Active Substance: INTERFERON BETA
     Indication: Multiple sclerosis
     Dosage: UNK
     Route: 065
  5. INTERFERON BETA [Suspect]
     Active Substance: INTERFERON BETA
     Indication: Uveitis
  6. INTERFERON BETA [Suspect]
     Active Substance: INTERFERON BETA
     Indication: Immunosuppressant drug therapy
  7. RITUXIMAB [Suspect]
     Active Substance: RITUXIMAB
     Indication: Relapsing-remitting multiple sclerosis
     Dosage: RECEIVED INFUSION ON DAY 0 AND DAY 14
     Route: 065
  8. RITUXIMAB [Suspect]
     Active Substance: RITUXIMAB
     Indication: Uveitis
     Dosage: UNK
     Route: 065
  9. RITUXIMAB [Suspect]
     Active Substance: RITUXIMAB
     Indication: Immunosuppressant drug therapy
  10. OZURDEX [Suspect]
     Active Substance: DEXAMETHASONE
     Indication: Multiple sclerosis
     Dosage: UNK
  11. OZURDEX [Suspect]
     Active Substance: DEXAMETHASONE
     Indication: Uveitis
  12. OZURDEX [Suspect]
     Active Substance: DEXAMETHASONE
     Indication: Immunosuppressant drug therapy

REACTIONS (1)
  - Drug ineffective [Unknown]
